FAERS Safety Report 8769480 (Version 2)
Quarter: 2012Q4

REPORT INFORMATION
  Report Type: 
  Country: CA (occurrence: CA)
  Receive Date: 20120905
  Receipt Date: 20120918
  Transmission Date: 20130627
  Serious: Yes (Other)
  Sender: FDA-Public Use
  Company Number: CA-ASTRAZENECA-2012SE64903

PATIENT
  Age: 63 Year
  Sex: Male

DRUGS (4)
  1. CRESTOR [Suspect]
     Route: 048
     Dates: start: 2006
  2. BRILINTA [Suspect]
     Route: 048
     Dates: start: 201208
  3. ASPIRIN [Concomitant]
     Route: 048
     Dates: start: 2001
  4. QUINAPRIL [Concomitant]
     Route: 048
     Dates: start: 2007

REACTIONS (3)
  - Myocardial infarction [Recovered/Resolved]
  - Oedema peripheral [Recovering/Resolving]
  - Pain in extremity [Recovering/Resolving]
